FAERS Safety Report 7079640-X (Version None)
Quarter: 2010Q4

REPORT INFORMATION
  Report Type: 
  Country: None (occurrence: None)
  Receive Date: 20101102
  Receipt Date: 20101020
  Transmission Date: 20110411
  Serious: Yes (Hospitalization)
  Sender: FDA-Public Use
  Company Number: PHHY2010FR71758

PATIENT
  Sex: Female

DRUGS (2)
  1. FEMARA [Suspect]
     Indication: BREAST CANCER
     Dosage: UNK
     Dates: start: 20060101
  2. CHEMOTHERAPEUTICS NOS [Concomitant]
     Indication: BREAST CANCER
     Dosage: UNK
     Dates: start: 20061001

REACTIONS (4)
  - AREFLEXIA [None]
  - NEURALGIA [None]
  - NEUROPATHY PERIPHERAL [None]
  - PARAESTHESIA [None]
